FAERS Safety Report 7657973-3 (Version None)
Quarter: 2011Q3

REPORT INFORMATION
  Report Type: 
  Country: None (occurrence: None)
  Receive Date: 20110805
  Receipt Date: 20110726
  Transmission Date: 20111222
  Serious: No
  Sender: FDA-Public Use
  Company Number: US-BIOGENIDEC-2011BI029004

PATIENT
  Age: 25 Year
  Sex: Female

DRUGS (1)
  1. AVONEX [Suspect]
     Indication: MULTIPLE SCLEROSIS
     Route: 030
     Dates: start: 20070101, end: 20100201

REACTIONS (12)
  - FATIGUE [None]
  - HYPOAESTHESIA [None]
  - PAIN [None]
  - INFLUENZA LIKE ILLNESS [None]
  - MUSCLE TWITCHING [None]
  - DEPRESSION [None]
  - MULTIPLE SCLEROSIS [None]
  - ANAEMIA [None]
  - BLEPHAROSPASM [None]
  - CENTRAL NERVOUS SYSTEM LESION [None]
  - VISION BLURRED [None]
  - ASTHENIA [None]
